FAERS Safety Report 7995934-5 (Version None)
Quarter: 2011Q4

REPORT INFORMATION
  Report Type: 
  Country: None (occurrence: None)
  Receive Date: 20111216
  Receipt Date: 20111212
  Transmission Date: 20120403
  Serious: Yes (Death, Hospitalization, Other)
  Sender: FDA-Public Use
  Company Number: ADR-2011-10799

PATIENT
  Sex: Male

DRUGS (2)
  1. LIORESAL [Suspect]
     Indication: MUSCLE SPASTICITY
     Dosage: DAILY, INTRATH
     Route: 037
  2. LIORESAL [Suspect]
     Indication: CEREBROVASCULAR ACCIDENT
     Dosage: DAILY, INTRATH
     Route: 037

REACTIONS (5)
  - PROCEDURAL PAIN [None]
  - UNDERDOSE [None]
  - PULMONARY EMBOLISM [None]
  - THERAPEUTIC RESPONSE DECREASED [None]
  - MENTAL STATUS CHANGES [None]
